FAERS Safety Report 4501335-4 (Version None)
Quarter: 2004Q3

REPORT INFORMATION
  Report Type: 
  Country: None (occurrence: None)
  Receive Date: 20040928
  Receipt Date: 20040816
  Transmission Date: 20050211
  Serious: No
  Sender: FDA-Public Use
  Company Number: 04P-163-0270739-00

PATIENT
  Age: 51 Year
  Sex: Male
  Weight: 89.3586 kg

DRUGS (2)
  1. HUMIRA [Suspect]
     Indication: RHEUMATOID ARTHRITIS
     Dosage: 40 MG, 1 IN 2 WK, SUBCUTANEOUS
     Route: 058
     Dates: start: 20040611
  2. PREDNISONE [Concomitant]

REACTIONS (5)
  - ARTHRALGIA [None]
  - INJECTION SITE BURNING [None]
  - JOINT SWELLING [None]
  - PAIN [None]
  - VISION BLURRED [None]
